FAERS Safety Report 17938771 (Version 1)
Quarter: 2020Q2

REPORT INFORMATION
  Report Type: Spontaneous
  Country: NL (occurrence: DE)
  Receive Date: 20200624
  Receipt Date: 20200624
  Transmission Date: 20200714
  Serious: Yes (Life-Threatening, Hospitalization, Other)
  Sender: FDA-Public Use
  Company Number: DE-FRESENIUS KABI-FK202006131

PATIENT
  Age: 49 Year
  Sex: Male
  Weight: 180 kg

DRUGS (4)
  1. FLUCYTOSINE. [Concomitant]
     Active Substance: FLUCYTOSINE
     Indication: CANDIDA SEPSIS
     Dosage: 7.7 G (8-10 O`CLOCK, 16-18 O`CLOCK AND 0-2 O`CLOCK)
     Route: 042
  2. ERTAPENEM. [Concomitant]
     Active Substance: ERTAPENEM SODIUM
     Indication: SEPSIS
     Dosage: 8-9 O`CLOCK AND 20-21 O`CLOCK
     Route: 042
  3. LINEZOLID (MANUFACTURER UNKNOWN) [Suspect]
     Active Substance: LINEZOLID
     Indication: SEPSIS
     Dosage: 1200 MG DAILY
     Route: 042
     Dates: start: 20200531, end: 20200605
  4. CASPOFUNGIN [Concomitant]
     Active Substance: CASPOFUNGIN
     Indication: CANDIDA SEPSIS
     Dosage: 70 MG (10-11 O`CLOCK)
     Route: 042

REACTIONS (2)
  - Rhabdomyolysis [Not Recovered/Not Resolved]
  - Renal failure [Not Recovered/Not Resolved]

NARRATIVE: CASE EVENT DATE: 20200603
